FAERS Safety Report 4849568-1 (Version None)
Quarter: 2005Q4

REPORT INFORMATION
  Report Type: 
  Country: None (occurrence: None)
  Receive Date: 20051207
  Receipt Date: 20051124
  Transmission Date: 20060501
  Serious: Yes (Disabling)
  Sender: FDA-Public Use
  Company Number: 2005127652

PATIENT
  Age: 30 Year
  Sex: Male
  Weight: 98 kg

DRUGS (2)
  1. ZIPRASIDONE HCL [Suspect]
     Indication: OBSESSIVE-COMPULSIVE DISORDER
     Dosage: 40 MG (40 MG, 1 IN 1 D), ORAL
     Route: 048
     Dates: start: 20040525
  2. ZOLOFT [Concomitant]

REACTIONS (3)
  - HUNGER [None]
  - TREATMENT NONCOMPLIANCE [None]
  - WEIGHT INCREASED [None]
